FAERS Safety Report 6053113-5 (Version None)
Quarter: 2009Q1

REPORT INFORMATION
  Report Type: 
  Country: None (occurrence: None)
  Receive Date: 20090122
  Receipt Date: 20090112
  Transmission Date: 20090719
  Serious: Yes (Other)
  Sender: FDA-Public Use
  Company Number: 2009AP000106

PATIENT
  Age: 8 Year
  Sex: Male

DRUGS (2)
  1. OMEPRAZOLE [Suspect]
     Indication: GASTROOESOPHAGEAL REFLUX DISEASE
     Dosage: 20 MG; QD; PO
     Route: 048
  2. OMEPRAZOLE [Concomitant]

REACTIONS (5)
  - EYE DISORDER [None]
  - HYPERSENSITIVITY [None]
  - OEDEMA PERIPHERAL [None]
  - SWELLING FACE [None]
  - URTICARIA [None]
